FAERS Safety Report 7352474-4 (Version None)
Quarter: 2011Q1

REPORT INFORMATION
  Report Type: 
  Country: None (occurrence: None)
  Receive Date: 20110315
  Receipt Date: 20110228
  Transmission Date: 20110831
  Serious: Yes (Other)
  Sender: FDA-Public Use
  Company Number: PHHY2011DE16398

PATIENT
  Age: 56 Year
  Sex: Female

DRUGS (4)
  1. ZOMETA [Suspect]
     Indication: BREAST CANCER METASTATIC
     Dosage: 4 MG, EVERY 4 WEEKS
     Route: 042
     Dates: start: 20091101
  2. CORTICOSTEROIDS [Concomitant]
  3. ARIMIDEX [Concomitant]
     Indication: BREAST CANCER
  4. KEPPRA [Concomitant]
     Indication: CONVULSION
     Dosage: 3 DF, UNK
     Route: 048

REACTIONS (2)
  - CONVULSION [None]
  - BONE DISORDER [None]
